FAERS Safety Report 9506982 (Version 3)
Quarter: 2013Q4

REPORT INFORMATION
  Report Type: Report from Study
  Country: CA (occurrence: CA)
  Receive Date: 20130909
  Receipt Date: 20131018
  Transmission Date: 20140711
  Serious: Yes (Hospitalization, Other)
  Sender: FDA-Public Use
  Company Number: CA-ROCHE-1138098

PATIENT
  Age: 63 Year
  Sex: Male

DRUGS (9)
  1. RITUXAN [Suspect]
     Indication: RHEUMATOID ARTHRITIS
     Dosage: LAST DOSE WAS ON 29/AUG/2012
     Route: 042
     Dates: start: 20120815
  2. PULMICORT [Concomitant]
  3. PREDNISONE [Concomitant]
  4. RISEDRONATE [Concomitant]
  5. CELEBREX [Concomitant]
  6. PREVACID [Concomitant]
  7. DIPHENHYDRAMINE HYDROCHLORIDE [Concomitant]
     Indication: PREMEDICATION
     Route: 048
     Dates: start: 20120815
  8. ACETAMINOPHEN [Concomitant]
     Indication: PREMEDICATION
     Route: 048
     Dates: start: 20120815
  9. METHYLPREDNISOLONE [Concomitant]
     Indication: PREMEDICATION
     Route: 042
     Dates: start: 20120815

REACTIONS (6)
  - Infusion related reaction [Recovered/Resolved]
  - Squamous cell carcinoma [Recovered/Resolved]
  - Dermal cyst [Recovered/Resolved]
  - Wound [Recovering/Resolving]
  - Haematoma [Unknown]
  - Abscess [Recovering/Resolving]
